FAERS Safety Report 13747754 (Version 1)
Quarter: 2017Q3

REPORT INFORMATION
  Report Type: Report from Study
  Country: None (occurrence: BR)
  Receive Date: 20170712
  Receipt Date: 20170712
  Transmission Date: 20171127
  Serious: Yes (Other)
  Sender: FDA-Public Use
  Company Number: BR-ABBVIE-17K-020-2030751-00

PATIENT
  Sex: Female
  Weight: 67 kg

DRUGS (3)
  1. HUMIRA [Suspect]
     Active Substance: ADALIMUMAB
     Indication: RHEUMATOID ARTHRITIS
     Route: 058
     Dates: start: 20050112
  2. HUMIRA [Suspect]
     Active Substance: ADALIMUMAB
     Route: 058
  3. METHOTREXATE. [Concomitant]
     Active Substance: METHOTREXATE
     Indication: RHEUMATOID ARTHRITIS
     Route: 048
     Dates: start: 1997

REACTIONS (6)
  - Infection susceptibility increased [Not Recovered/Not Resolved]
  - Uterine leiomyoma [Recovered/Resolved]
  - Fatigue [Recovering/Resolving]
  - Oral herpes [Not Recovered/Not Resolved]
  - Immunodeficiency [Recovering/Resolving]
  - Asthenia [Recovering/Resolving]
